FAERS Safety Report 9164048 (Version 3)
Quarter: 2015Q1

REPORT INFORMATION
  Report Type: Spontaneous
  Country: US (occurrence: US)
  Receive Date: 20130314
  Receipt Date: 20150115
  Transmission Date: 20150721
  Serious: Yes (Disabling, Other)
  Sender: FDA-Public Use
  Company Number: US-009507513-1303USA006762

PATIENT
  Sex: Male
  Weight: 95.24 kg

DRUGS (2)
  1. PROPECIA [Suspect]
     Active Substance: FINASTERIDE
     Indication: ANDROGENETIC ALOPECIA
     Dosage: 1 MG, QD
     Route: 048
     Dates: start: 20020226, end: 20111120
  2. ZETIA [Concomitant]
     Active Substance: EZETIMIBE
     Indication: BLOOD CHOLESTEROL INCREASED
     Dosage: UNK
     Route: 048

REACTIONS (18)
  - Cognitive disorder [Not Recovered/Not Resolved]
  - Hernia repair [Unknown]
  - Benign prostatic hyperplasia [Not Recovered/Not Resolved]
  - Sexual dysfunction [Not Recovered/Not Resolved]
  - Depression [Unknown]
  - Penile prosthesis insertion [Unknown]
  - Cancer surgery [Unknown]
  - Hip arthroplasty [Unknown]
  - Colectomy [Unknown]
  - Cerebrovascular accident [Unknown]
  - Libido decreased [Not Recovered/Not Resolved]
  - Knee operation [Unknown]
  - Semen volume decreased [Not Recovered/Not Resolved]
  - Drug hypersensitivity [Unknown]
  - Cataract operation [Unknown]
  - Gynaecomastia [Not Recovered/Not Resolved]
  - Organic erectile dysfunction [Not Recovered/Not Resolved]
  - Squamous cell carcinoma [Unknown]

NARRATIVE: CASE EVENT DATE: 2002
